FAERS Safety Report 8596543-X (Version None)
Quarter: 2012Q3

REPORT INFORMATION
  Report Type: 
  Country: None (occurrence: None)
  Receive Date: 20120806
  Receipt Date: 20120806
  Transmission Date: 20120928
  Serious: No
  Sender: FDA-Public Use
  Company Number: None

PATIENT

DRUGS (1)
  1. RANEXA [Suspect]
     Indication: CARDIAC VALVE DISEASE
     Dosage: 1000 MG 2 TIMES A DAY PO
     Route: 048
     Dates: start: 20120726, end: 20120730

REACTIONS (5)
  - ABNORMAL DREAMS [None]
  - CONFUSIONAL STATE [None]
  - FALL [None]
  - ASTHENIA [None]
  - DIZZINESS [None]
